FAERS Safety Report 26216757 (Version 1)
Quarter: 2025Q4

REPORT INFORMATION
  Report Type: Spontaneous
  Country: GB (occurrence: GB)
  Receive Date: 20251231
  Receipt Date: 20251231
  Transmission Date: 20260118
  Serious: Yes (Other)
  Sender: TEVA
  Company Number: GB-TEVA-VS-3407352

PATIENT
  Age: 29 Year
  Sex: Female

DRUGS (3)
  1. WARFARIN [Suspect]
     Active Substance: WARFARIN
     Indication: Pulmonary embolism
     Route: 065
  2. HERBALS\SPIRULINA [Suspect]
     Active Substance: HERBALS\SPIRULINA
     Indication: Immune system disorder
     Route: 065
  3. IMMUNE GLOBULIN NOS [Suspect]
     Active Substance: IMMUNE GLOBULIN NOS
     Indication: Dermatomyositis
     Route: 042

REACTIONS (4)
  - Dermatomyositis [Recovering/Resolving]
  - Thrombosis [Unknown]
  - Pulmonary embolism [Unknown]
  - Erythema [Recovered/Resolved]
